FAERS Safety Report 8350078-8 (Version None)
Quarter: 2012Q2

REPORT INFORMATION
  Report Type: 
  Country: None (occurrence: None)
  Receive Date: 20120510
  Receipt Date: 20120504
  Transmission Date: 20120825
  Serious: No
  Sender: FDA-Public Use
  Company Number: US-PFIZER INC-2012100826

PATIENT
  Sex: Male
  Weight: 99.8 kg

DRUGS (2)
  1. CELEBREX [Suspect]
     Indication: ARTHRITIS
     Dosage: UNK
     Dates: start: 20010101, end: 20010101
  2. IBUPROFEN [Concomitant]
     Dosage: UNK

REACTIONS (2)
  - DRUG HYPERSENSITIVITY [None]
  - BLOOD URINE PRESENT [None]
